FAERS Safety Report 7022505-X (Version None)
Quarter: 2010Q3

REPORT INFORMATION
  Report Type: 
  Country: None (occurrence: None)
  Receive Date: 20100930
  Receipt Date: 20100920
  Transmission Date: 20110219
  Serious: Yes (Hospitalization)
  Sender: FDA-Public Use
  Company Number: US-ELI_LILLY_AND_COMPANY-US201008001054

PATIENT
  Sex: Female
  Weight: 72.562 kg

DRUGS (13)
  1. BYETTA [Suspect]
     Indication: TYPE 2 DIABETES MELLITUS
     Dosage: 5 UG, 2/D
     Route: 058
  2. BYETTA [Suspect]
     Dosage: 10 UG, 2/D
     Route: 058
  3. ANTIHYPERTENSIVES [Concomitant]
     Indication: HYPERTENSION
     Route: 048
  4. DIGOXIN [Concomitant]
     Dosage: UNK, DAILY (1/D)
     Route: 048
  5. IMDUR [Concomitant]
     Route: 048
  6. PLAVIX [Concomitant]
     Dosage: 75 MG, DAILY (1/D)
     Route: 048
  7. THYROID THERAPY [Concomitant]
     Dosage: UNK, DAILY (1/D)
     Route: 048
  8. BUPROPION HCL [Concomitant]
     Dosage: 150 MG, 2/D
     Route: 048
  9. LIPITOR [Concomitant]
     Dosage: 10 MG, UNK
     Route: 048
  10. LIPITOR [Concomitant]
     Dosage: 80 MG, DAILY (1/D)
     Route: 048
  11. METFORMIN [Concomitant]
     Indication: TYPE 2 DIABETES MELLITUS
     Dosage: 500 MG, DAILY (1/D)
     Route: 048
  12. HUMALOG [Concomitant]
     Dosage: UNK, 3/D
     Route: 058
  13. LANTUS [Concomitant]

REACTIONS (7)
  - ASTHENIA [None]
  - BLOOD GLUCOSE DECREASED [None]
  - CORONARY ARTERY OCCLUSION [None]
  - OFF LABEL USE [None]
  - SLEEP DISORDER [None]
  - TREMOR [None]
  - WEIGHT DECREASED [None]
